FAERS Safety Report 4943534-3 (Version None)
Quarter: 2006Q1

REPORT INFORMATION
  Report Type: 
  Country: None (occurrence: None)
  Receive Date: 20060309
  Receipt Date: 20060303
  Transmission Date: 20060701
  Serious: Yes (Hospitalization)
  Sender: FDA-Public Use
  Company Number: 2005-09-0345

PATIENT
  Age: 14 Year
  Sex: Female

DRUGS (1)
  1. ALBUTEROL SULFATE AUTOHALER [Suspect]
     Dosage: ORAL AER INH
     Route: 055
     Dates: start: 20041230, end: 20050101

REACTIONS (9)
  - ABDOMINAL PAIN UPPER [None]
  - ASTHENIA [None]
  - BODY TEMPERATURE DECREASED [None]
  - CHOLECYSTECTOMY [None]
  - DRUG PRESCRIBING ERROR [None]
  - HEADACHE [None]
  - HEART RATE INCREASED [None]
  - MIGRAINE [None]
  - TREMOR [None]
